FAERS Safety Report 8729967 (Version 2)
Quarter: 2015Q1

REPORT INFORMATION
  Report Type: Spontaneous
  Country: US (occurrence: US)
  Receive Date: 20120817
  Receipt Date: 20150317
  Transmission Date: 20150721
  Serious: No
  Sender: FDA-Public Use
  Company Number: US-GLAXOSMITHKLINE-A0920456A

PATIENT
  Age: 75 Year
  Sex: Male

DRUGS (18)
  1. VOTRIENT [Suspect]
     Active Substance: PAZOPANIB HYDROCHLORIDE
     Indication: RENAL CANCER STAGE IV
     Dosage: 800 MG, 1D
     Route: 048
     Dates: start: 20110317
  2. NIASPAN [Concomitant]
     Active Substance: NIACIN
  3. NOVOLOG [Concomitant]
     Active Substance: INSULIN ASPART
  4. FOLIC ACID. [Concomitant]
     Active Substance: FOLIC ACID
  5. DORZOLAMIDE HYDROCHLORIDE + TIMOLOL MALEATE [Concomitant]
  6. HYDROCHLOROTHIAZIDE. [Concomitant]
     Active Substance: HYDROCHLOROTHIAZIDE
  7. CARVEDILOL. [Concomitant]
     Active Substance: CARVEDILOL
  8. TEKTURNA [Concomitant]
     Active Substance: ALISKIREN HEMIFUMARATE
  9. ASPIRIN. [Concomitant]
     Active Substance: ASPIRIN
  10. LOVASTATIN. [Concomitant]
     Active Substance: LOVASTATIN
  11. TIMOLOL MALEATE. [Concomitant]
     Active Substance: TIMOLOL MALEATE
  12. LANTUS [Concomitant]
     Active Substance: INSULIN GLARGINE
  13. VITAMIN E [Concomitant]
     Active Substance: .ALPHA.-TOCOPHEROL
  14. PLAVIX [Concomitant]
     Active Substance: CLOPIDOGREL BISULFATE
  15. IMODIUM [Concomitant]
     Active Substance: LOPERAMIDE HYDROCHLORIDE
  16. GAS-X [Concomitant]
     Active Substance: DIMETHICONE
  17. VOTRIENT [Suspect]
     Active Substance: PAZOPANIB HYDROCHLORIDE
     Dosage: 800 MG, 1D
     Route: 048
     Dates: start: 20110317
  18. LOTREL [Concomitant]
     Active Substance: AMLODIPINE BESYLATE\BENAZEPRIL HYDROCHLORIDE

REACTIONS (9)
  - Eating disorder [Recovering/Resolving]
  - Fatigue [Not Recovered/Not Resolved]
  - Flatulence [Not Recovered/Not Resolved]
  - Asthenia [Unknown]
  - Blood pressure increased [Recovering/Resolving]
  - Decreased appetite [Unknown]
  - Dyspepsia [Not Recovered/Not Resolved]
  - Diarrhoea [Not Recovered/Not Resolved]
  - Weight decreased [Not Recovered/Not Resolved]

NARRATIVE: CASE EVENT DATE: 20110317
